FAERS Safety Report 6046434-3 (Version None)
Quarter: 2009Q1

REPORT INFORMATION
  Report Type: 
  Country: None (occurrence: None)
  Receive Date: 20090122
  Receipt Date: 20090120
  Transmission Date: 20090719
  Serious: Yes (Other)
  Sender: FDA-Public Use
  Company Number: US-ASTRAZENECA-2007UW11543

PATIENT
  Age: 51 Year
  Sex: Male
  Weight: 75.7 kg

DRUGS (7)
  1. SEROQUEL [Suspect]
     Indication: SLEEP DISORDER
     Route: 048
     Dates: start: 20030101, end: 20080101
  2. SEROQUEL [Suspect]
     Route: 048
     Dates: start: 20080101, end: 20080208
  3. HALDOL [Concomitant]
     Dates: start: 19710101
  4. ZYPREXA [Concomitant]
     Dates: start: 20050101
  5. LIPITOR [Concomitant]
  6. RISPERIDONE [Concomitant]
  7. DEPAKOTE [Concomitant]
     Dates: start: 20030101

REACTIONS (5)
  - BLOOD CHOLESTEROL INCREASED [None]
  - BLOOD TRIGLYCERIDES INCREASED [None]
  - DIABETES MELLITUS [None]
  - ILL-DEFINED DISORDER [None]
  - NEUROPATHY PERIPHERAL [None]
